FAERS Safety Report 21038168 (Version 3)
Quarter: 2022Q4

REPORT INFORMATION
  Report Type: Spontaneous
  Country: US (occurrence: US)
  Receive Date: 20220704
  Receipt Date: 20221114
  Transmission Date: 20230113
  Serious: Yes (Hospitalization, Other)
  Sender: FDA-Public Use
  Company Number: US-BoehringerIngelheim-2022-BI-179473

PATIENT
  Age: 68 Year
  Sex: Male
  Weight: 110 kg

DRUGS (5)
  1. OFEV [Suspect]
     Active Substance: NINTEDANIB
     Indication: Pulmonary fibrosis
     Dates: start: 202107, end: 202111
  2. OFEV [Suspect]
     Active Substance: NINTEDANIB
     Dates: end: 202112
  3. OFEV [Suspect]
     Active Substance: NINTEDANIB
     Dates: start: 202207
  4. OFEV [Suspect]
     Active Substance: NINTEDANIB
     Dates: start: 202210
  5. PREDNISONE [Concomitant]
     Active Substance: PREDNISONE
     Indication: Product used for unknown indication

REACTIONS (7)
  - Deep vein thrombosis [Recovered/Resolved]
  - Pulmonary embolism [Recovered/Resolved]
  - Defaecation urgency [Not Recovered/Not Resolved]
  - Nausea [Not Recovered/Not Resolved]
  - Dyschezia [Not Recovered/Not Resolved]
  - Abdominal pain [Not Recovered/Not Resolved]
  - Intentional product use issue [Unknown]

NARRATIVE: CASE EVENT DATE: 20210101
